FAERS Safety Report 16165394 (Version 4)
Quarter: 2019Q3

REPORT INFORMATION
  Report Type: Report from Study
  Country: US (occurrence: US)
  Receive Date: 20190405
  Receipt Date: 20190715
  Transmission Date: 20191004
  Serious: Yes (Hospitalization, Other)
  Sender: FDA-Public Use
  Company Number: PHEH2019US014776

PATIENT
  Age: 77 Year
  Sex: Male
  Weight: 139.7 kg

DRUGS (14)
  1. LASIX [Concomitant]
     Active Substance: FUROSEMIDE
     Indication: PRODUCT USED FOR UNKNOWN INDICATION
     Dosage: 40 MG, BID
     Route: 065
  2. WARFARIN [Concomitant]
     Active Substance: WARFARIN
     Indication: PRODUCT USED FOR UNKNOWN INDICATION
     Dosage: 1.5 DF,(TAKE ONE AND ONE HALF TABS OR 4.5 MG MONDAY AND FRIDAY AFTER 4PM OR AS DIRECTED)
     Route: 065
  3. CARVEDILOL. [Concomitant]
     Active Substance: CARVEDILOL
     Indication: PRODUCT USED FOR UNKNOWN INDICATION
     Dosage: 2 DF, (50MG, 360MG TOTAL WITH MEALS) BID
     Route: 048
  4. WARFARIN [Concomitant]
     Active Substance: WARFARIN
     Dosage: 3 MG, (OTHER 5 DAYS)
     Route: 065
  5. ATORVASTATIN [Concomitant]
     Active Substance: ATORVASTATIN
     Indication: PRODUCT USED FOR UNKNOWN INDICATION
     Dosage: 80 MG, QD
     Route: 048
  6. POTASSIUM CHLORIDE. [Concomitant]
     Active Substance: POTASSIUM CHLORIDE
     Indication: PRODUCT USED FOR UNKNOWN INDICATION
     Dosage: 20 MEQ, QD
     Route: 048
  7. ENTRESTO [Suspect]
     Active Substance: SACUBITRIL\VALSARTAN
     Indication: PRODUCT USED FOR UNKNOWN INDICATION
     Dosage: 1 DF, (SACUBITRIL 24 MG/ VALSARTAN 26 MG) BID
     Route: 048
  8. ALBUTEROL. [Concomitant]
     Active Substance: ALBUTEROL
     Indication: PRODUCT USED FOR UNKNOWN INDICATION
     Dosage: 2 PUFFS EVERY 6 HOURS AS NEEDED
     Route: 048
  9. ASPIRIN. [Concomitant]
     Active Substance: ASPIRIN
     Indication: PRODUCT USED FOR UNKNOWN INDICATION
     Dosage: 1 DF (81MG), QD
     Route: 048
  10. ALDACTONE [Concomitant]
     Active Substance: SPIRONOLACTONE
     Indication: PRIMARY HYPERALDOSTERONISM
     Dosage: 12.5 MG, QD
     Route: 065
  11. DILTIAZEM. [Concomitant]
     Active Substance: DILTIAZEM
     Indication: PRODUCT USED FOR UNKNOWN INDICATION
     Dosage: 120 MG, QD
     Route: 048
  12. AMIODARONE HYDROCHLORIDE. [Suspect]
     Active Substance: AMIODARONE HYDROCHLORIDE
     Indication: PRODUCT USED FOR UNKNOWN INDICATION
     Route: 065
  13. ALDACTONE [Concomitant]
     Active Substance: SPIRONOLACTONE
     Dosage: 25 UNK, UNK
     Route: 048
  14. DUONEB [Concomitant]
     Active Substance: ALBUTEROL SULFATE\IPRATROPIUM BROMIDE
     Indication: PRODUCT USED FOR UNKNOWN INDICATION
     Dosage: PLACE 3ML IN NEBULIZER 4 TIMES DAILY
     Route: 065

REACTIONS (22)
  - Myocardial infarction [Unknown]
  - Blood pressure orthostatic [Unknown]
  - Orthopnoea [Unknown]
  - Blood pressure decreased [Unknown]
  - Dizziness [Unknown]
  - Atrial fibrillation [Unknown]
  - Patent ductus arteriosus [Unknown]
  - Hypoaesthesia [Unknown]
  - Malaise [Unknown]
  - Rhonchi [Unknown]
  - Staphylococcus test positive [Unknown]
  - Dysarthria [Unknown]
  - Ventricular dysfunction [Unknown]
  - Weight increased [Unknown]
  - Cerebrovascular accident [Unknown]
  - Dyspnoea [Unknown]
  - Asthenia [Unknown]
  - Rales [Unknown]
  - High density lipoprotein decreased [Unknown]
  - Cardiac failure [Unknown]
  - Cardiomyopathy [Unknown]
  - Coronary artery disease [Unknown]

NARRATIVE: CASE EVENT DATE: 2018
